FAERS Safety Report 5680035-1 (Version None)
Quarter: 2008Q1

REPORT INFORMATION
  Report Type: 
  Country: None (occurrence: None)
  Receive Date: 20080307
  Receipt Date: 20080307
  Transmission Date: 20080703
  Serious: Yes (Other)
  Sender: FDA-Public Use
  Company Number: None

PATIENT
  Age: 55 Year
  Sex: Male
  Weight: 122.4712 kg

DRUGS (2)
  1. PHOSPHATIDYLCHOLINE  5%    ? [Suspect]
     Indication: FAT TISSUE INCREASED
     Dosage: ONCE MONTH INJECTI
     Dates: start: 20070706, end: 20080226
  2. SODIUM DEOXYCHOLATE    4.2%    ? [Suspect]
     Dosage: ONCE MONTH INJECTI

REACTIONS (3)
  - DRUG INEFFECTIVE [None]
  - POST PROCEDURAL COMPLICATION [None]
  - WAIST CIRCUMFERENCE INCREASED [None]
